FAERS Safety Report 17770332 (Version 1)
Quarter: 2020Q2

REPORT INFORMATION
  Report Type: Spontaneous
  Country: JP (occurrence: JP)
  Receive Date: 20200512
  Receipt Date: 20200512
  Transmission Date: 20200714
  Serious: Yes (Other)
  Sender: FDA-Public Use
  Company Number: JP-ACCORD-181092

PATIENT
  Age: 51 Year
  Sex: Female

DRUGS (8)
  1. PACLITAXEL/PACLITAXEL LIPOSOME [Suspect]
     Active Substance: PACLITAXEL
     Indication: METASTASES TO LYMPH NODES
     Dosage: PACLITAXEL (90  MG/M2 , DAYS 1, 8, AND 15) ADMINISTERED EVERY 28  DAYS
  2. PACLITAXEL/PACLITAXEL LIPOSOME [Suspect]
     Active Substance: PACLITAXEL
     Indication: PANCREATIC CARCINOMA
     Dosage: PACLITAXEL (90  MG/M2 , DAYS 1, 8, AND 15) ADMINISTERED EVERY 28  DAYS
  3. BEVACIZUMAB. [Concomitant]
     Active Substance: BEVACIZUMAB
     Indication: BONE CANCER
     Dosage: BEVACIZUMAB (10  MG/M2 , DAYS 1 AND 15), ADMINISTERED EVERY 28  DAYS
  4. PACLITAXEL/PACLITAXEL LIPOSOME [Suspect]
     Active Substance: PACLITAXEL
     Indication: BONE CANCER
     Dosage: PACLITAXEL (90  MG/M2 , DAYS 1, 8, AND 15) ADMINISTERED EVERY 28  DAYS
  5. PACLITAXEL/PACLITAXEL LIPOSOME [Suspect]
     Active Substance: PACLITAXEL
     Indication: BREAST CANCER STAGE IV
     Dosage: PACLITAXEL (90  MG/M2 , DAYS 1, 8, AND 15) ADMINISTERED EVERY 28  DAYS
  6. PACLITAXEL/PACLITAXEL LIPOSOME [Suspect]
     Active Substance: PACLITAXEL
     Indication: METASTASES TO LUNG
     Dosage: PACLITAXEL (90  MG/M2 , DAYS 1, 8, AND 15) ADMINISTERED EVERY 28  DAYS
  7. BEVACIZUMAB. [Concomitant]
     Active Substance: BEVACIZUMAB
     Indication: BREAST CANCER STAGE IV
     Dosage: BEVACIZUMAB (10  MG/M2 , DAYS 1 AND 15), ADMINISTERED EVERY 28  DAYS
  8. ZOLEDRONIC ACID [Concomitant]
     Active Substance: ZOLEDRONIC ACID
     Indication: BONE CANCER

REACTIONS (2)
  - Influenza [Recovered/Resolved]
  - Hypoaesthesia [Recovered/Resolved]
